FAERS Safety Report 4469122-3 (Version None)
Quarter: 2004Q4

REPORT INFORMATION
  Report Type: 
  Country: None (occurrence: None)
  Receive Date: 20041005
  Receipt Date: 20041005
  Transmission Date: 20050328
  Serious: Yes (Hospitalization)
  Sender: FDA-Public Use
  Company Number: None

PATIENT
  Age: 50 Year
  Sex: Male
  Weight: 89.1 kg

DRUGS (2)
  1. CISPLATIN [Suspect]
     Indication: CARCINOMA
     Dosage: 200 MG IV
     Route: 042
     Dates: start: 20040901
  2. RADIATION THERAPY [Concomitant]

REACTIONS (3)
  - ELECTROLYTE IMBALANCE [None]
  - RENAL FAILURE ACUTE [None]
  - THROMBOCYTOPENIA [None]
